FAERS Safety Report 8902320 (Version 1)
Quarter: 2012Q4

REPORT INFORMATION
  Report Type: 
  Country: US (occurrence: US)
  Receive Date: 20121112
  Receipt Date: 20121112
  Transmission Date: 20130627
  Serious: No
  Sender: FDA-Public Use
  Company Number: US-PFIZER INC-2012281250

PATIENT
  Age: 64 Year
  Sex: Female

DRUGS (1)
  1. CAMPTOSAR [Suspect]
     Indication: COLON CANCER
     Dosage: 230 mg, cyclic, every 14 days
     Route: 042

REACTIONS (2)
  - Disease progression [Unknown]
  - Colon cancer [Unknown]
